FAERS Safety Report 8337432-5 (Version None)
Quarter: 2012Q1

REPORT INFORMATION
  Report Type: 
  Country: None (occurrence: None)
  Receive Date: 20120329
  Receipt Date: 20100713
  Transmission Date: 20120608
  Serious: Yes (Other)
  Sender: FDA-Public Use
  Company Number: PHHY2010US46184

PATIENT
  Sex: Female

DRUGS (1)
  1. EXELON [Suspect]
     Dosage: TRANSDERMAL
     Route: 062

REACTIONS (7)
  - POOR QUALITY SLEEP [None]
  - HALLUCINATION, VISUAL [None]
  - URINARY TRACT INFECTION [None]
  - ASTHENIA [None]
  - POLLAKIURIA [None]
  - BLOOD PRESSURE DECREASED [None]
  - HALLUCINATION, AUDITORY [None]
